FAERS Safety Report 4292203-4 (Version None)
Quarter: 2004Q1

REPORT INFORMATION
  Report Type: 
  Country: None (occurrence: None)
  Receive Date: 20040126
  Receipt Date: 20030826
  Transmission Date: 20041129
  Serious: No
  Sender: FDA-Public Use
  Company Number: USA030845487

PATIENT
  Age: 78 Year
  Sex: Female

DRUGS (14)
  1. FORTEO [Suspect]
     Indication: BONE DENSITY DECREASED
     Dates: start: 20030814
  2. CARDIZEM CD [Concomitant]
  3. COZAAR [Concomitant]
  4. ALLEGRA [Concomitant]
  5. NEXIUM [Concomitant]
  6. SYNTHROID [Concomitant]
  7. IRON [Concomitant]
  8. CARISOPRODOL [Concomitant]
  9. ASPIRIN [Concomitant]
  10. MULTI-VITAMINS [Concomitant]
  11. SEREVENT [Concomitant]
  12. GLUCOSAMINE CHONDROITIN [Concomitant]
  13. XALATAN [Concomitant]
  14. ALPHAGAN [Concomitant]

REACTIONS (3)
  - ASTHENIA [None]
  - DIZZINESS [None]
  - INJECTION SITE ERYTHEMA [None]
